FAERS Safety Report 8862258 (Version 1)
Quarter: 2012Q4

REPORT INFORMATION
  Report Type: 
  Country: US (occurrence: US)
  Receive Date: 20121026
  Receipt Date: 20121026
  Transmission Date: 20130627
  Serious: Yes (Hospitalization, Other)
  Sender: FDA-Public Use
  Company Number: US-UCBSA-069450

PATIENT
  Age: 0 Year
  Sex: Male
  Weight: 2.8 kg

DRUGS (5)
  1. CIMZIA [Suspect]
     Indication: RHEUMATOID ARTHRITIS
     Route: 064
     Dates: start: 20111117, end: 20120119
  2. METHOTREXATE [Concomitant]
     Route: 064
     Dates: start: 20111117, end: 20120119
  3. IBUPROFEN [Concomitant]
     Route: 064
     Dates: start: 20111117, end: 20120912
  4. PREDNISONE [Concomitant]
     Route: 064
     Dates: start: 20111117, end: 20120912
  5. PRENATAL MULTIVITAMINS [Concomitant]
     Dosage: 1 TABLET DAILY
     Route: 064
     Dates: start: 201201, end: 20120911

REACTIONS (2)
  - Postmature baby [Unknown]
  - Foetal exposure during pregnancy [Recovered/Resolved]
